FAERS Safety Report 4934116-8 (Version None)
Quarter: 2006Q1

REPORT INFORMATION
  Report Type: 
  Country: None (occurrence: None)
  Receive Date: 20060307
  Receipt Date: 20060223
  Transmission Date: 20060701
  Serious: Yes (Hospitalization, Other)
  Sender: FDA-Public Use
  Company Number: BR-BRISTOL-MYERS SQUIBB COMPANY-13301767

PATIENT
  Age: 50 Year
  Sex: Female

DRUGS (2)
  1. COUMADIN [Suspect]
     Indication: THROMBOSIS PROPHYLAXIS
     Dates: start: 20060101, end: 20060201
  2. MAREVAN [Concomitant]
     Dosage: STOPPED IN JAN-2006 AND SUBSTITUTED WITH COUMADIN, REINTRODUCED IN FEB-2006 WHEN COUMADIN WAS D'CD

REACTIONS (3)
  - ECCHYMOSIS [None]
  - HAEMATOMA [None]
  - UPPER LIMB FRACTURE [None]
